FAERS Safety Report 15251840 (Version 1)
Quarter: 2018Q4

REPORT INFORMATION
  Report Type: Spontaneous
  Country: US (occurrence: US)
  Receive Date: 20180807
  Receipt Date: 20180807
  Transmission Date: 20190204
  Serious: No
  Sender: FDA-Public Use
  Company Number: US-LOREAL USA PRODUCTS, INC.-2018LOR00003

PATIENT
  Sex: Female

DRUGS (4)
  1. LA ROCHE POSAY LAB. DERMATOLOGIQUE ANTHELIOS SX DAILY MOISTURIZING SUNSCREEN SPF 15 [Suspect]
     Active Substance: AVOBENZONE\ECAMSULE\OCTOCRYLENE
     Dosage: UNK
  2. ROSALIAC AR [Concomitant]
  3. CYTOPLAST BALM [Concomitant]
  4. LA ROCHE POSAY REDERMIC C UV SUNSCREEN [Suspect]
     Active Substance: AVOBENZONE\OCTISALATE\OCTOCRYLENE
     Dosage: UNK

REACTIONS (2)
  - Rosacea [Recovered/Resolved]
  - Rash [Recovered/Resolved]
